FAERS Safety Report 9934147 (Version 1)
Quarter: 2014Q1

REPORT INFORMATION
  Report Type: Spontaneous
  Country: US (occurrence: US)
  Receive Date: 20140228
  Receipt Date: 20140228
  Transmission Date: 20141002
  Serious: Yes (Hospitalization)
  Sender: FDA-Public Use
  Company Number: US-SA-2014SA024124

PATIENT
  Sex: 0

DRUGS (1)
  1. TAXOTERE [Suspect]
     Route: 065

REACTIONS (1)
  - Capillary leak syndrome [Unknown]
